FAERS Safety Report 7204378-5 (Version None)
Quarter: 2010Q4

REPORT INFORMATION
  Report Type: 
  Country: None (occurrence: None)
  Receive Date: 20101230
  Receipt Date: 20101222
  Transmission Date: 20110411
  Serious: Yes (Other)
  Sender: FDA-Public Use
  Company Number: JP-ROCHE-750593

PATIENT
  Age: 67 Year
  Sex: Female

DRUGS (1)
  1. ACTEMRA [Suspect]
     Indication: RHEUMATOID ARTHRITIS
     Dosage: NOTE: DOSAGE IS UNCERTAIN
     Route: 041

REACTIONS (1)
  - ORGANISING PNEUMONIA [None]
